FAERS Safety Report 5422436-2 (Version None)
Quarter: 2007Q3

REPORT INFORMATION
  Report Type: 
  Country: None (occurrence: None)
  Receive Date: 20070822
  Receipt Date: 20070813
  Transmission Date: 20080115
  Serious: Yes (Hospitalization)
  Sender: FDA-Public Use
  Company Number: B0484014A

PATIENT
  Age: 46 Year

DRUGS (2)
  1. AVANDAMET [Suspect]
     Dates: end: 20070718
  2. ANOPYRIN [Concomitant]
     Dosage: 100MG PER DAY

REACTIONS (8)
  - ANOREXIA [None]
  - ASCITES [None]
  - CACHEXIA [None]
  - CARDIAC FAILURE ACUTE [None]
  - CONGESTIVE CARDIOMYOPATHY [None]
  - DYSPNOEA [None]
  - OEDEMA PERIPHERAL [None]
  - VOMITING [None]
